FAERS Safety Report 19011927 (Version 1)
Quarter: 2021Q1

REPORT INFORMATION
  Report Type: Spontaneous
  Country: US (occurrence: US)
  Receive Date: 20210315
  Receipt Date: 20210315
  Transmission Date: 20210420
  Serious: No
  Sender: FDA-Public Use
  Company Number: US-PFIZER INC-2021205921

PATIENT
  Age: 71 Year
  Sex: Female
  Weight: 140 kg

DRUGS (4)
  1. OXCARBAZEPINE. [Suspect]
     Active Substance: OXCARBAZEPINE
     Indication: NEURALGIA
     Dosage: 150 MG
  2. TIZANIDINE. [Suspect]
     Active Substance: TIZANIDINE
     Indication: NEURALGIA
     Dosage: 2 MG
  3. GABAPENTIN. [Suspect]
     Active Substance: GABAPENTIN
     Indication: NEURALGIA
     Dosage: 100 MG, 3X/DAY
  4. TRAMADOL. [Suspect]
     Active Substance: TRAMADOL
     Indication: NEURALGIA
     Dosage: 25 MG

REACTIONS (1)
  - Drug ineffective [Unknown]
